FAERS Safety Report 5896731-7 (Version None)
Quarter: 2008Q3

REPORT INFORMATION
  Report Type: 
  Country: None (occurrence: None)
  Receive Date: 20080924
  Receipt Date: 20080218
  Transmission Date: 20090109
  Serious: Yes (Other)
  Sender: FDA-Public Use
  Company Number: US-ASTRAZENECA-2007UW28697

PATIENT
  Age: 30 Year
  Sex: Female

DRUGS (4)
  1. SEROQUEL [Suspect]
     Indication: BIPOLAR DISORDER
     Dosage: FIFTY TO SIXTY 100 MG TABLETS
     Route: 048
  2. LAMICTAL [Suspect]
     Indication: BIPOLAR DISORDER
     Route: 048
  3. CYMBALTA [Concomitant]
  4. AMBIEN [Concomitant]

REACTIONS (6)
  - DECREASED INTEREST [None]
  - INTENTIONAL OVERDOSE [None]
  - LIBIDO DECREASED [None]
  - MOOD SWINGS [None]
  - SLEEP DISORDER [None]
  - SUICIDE ATTEMPT [None]
